FAERS Safety Report 7370069-3 (Version None)
Quarter: 2011Q1

REPORT INFORMATION
  Report Type: 
  Country: None (occurrence: None)
  Receive Date: 20110323
  Receipt Date: 20110310
  Transmission Date: 20110831
  Serious: No
  Sender: FDA-Public Use
  Company Number: PHHY2010BR56690

PATIENT
  Sex: Female

DRUGS (1)
  1. DIOVAN HCT [Suspect]
     Dosage: 160/12.5 MG

REACTIONS (5)
  - BLOOD PRESSURE FLUCTUATION [None]
  - WEIGHT INCREASED [None]
  - THYROID OPERATION [None]
  - HYPERTENSION [None]
  - DRUG INEFFECTIVE [None]
